FAERS Safety Report 21643422 (Version 1)
Quarter: 2022Q4

REPORT INFORMATION
  Report Type: Report from Study
  Country: US (occurrence: US)
  Receive Date: 20221125
  Receipt Date: 20221125
  Transmission Date: 20230113
  Serious: Yes (Other)
  Sender: FDA-Public Use
  Company Number: US-ABBVIE-4212962

PATIENT
  Sex: Female

DRUGS (1)
  1. HUMIRA [Suspect]
     Active Substance: ADALIMUMAB
     Indication: Product used for unknown indication
     Route: 058

REACTIONS (8)
  - Visual impairment [Unknown]
  - Skin disorder [Unknown]
  - Pruritus [Unknown]
  - Skin laceration [Unknown]
  - Impaired healing [Unknown]
  - Scab [Unknown]
  - Dry skin [Unknown]
  - Headache [Unknown]
